FAERS Safety Report 20530994 (Version 1)
Quarter: 2022Q1

REPORT INFORMATION
  Report Type: Spontaneous
  Country: US (occurrence: US)
  Receive Date: 20220301
  Receipt Date: 20220301
  Transmission Date: 20220423
  Serious: No
  Sender: FDA-Public Use
  Company Number: US-BAYER-2022A028276

PATIENT
  Age: 2 Year
  Sex: Male

DRUGS (2)
  1. CHILDREN CLARITIN ALLERGY [Suspect]
     Active Substance: LORATADINE
     Indication: Hypersensitivity
     Dosage: 5 ML, QD
     Route: 048
     Dates: start: 202202, end: 202202
  2. CHILDREN CLARITIN ALLERGY [Suspect]
     Active Substance: LORATADINE
     Indication: Nasopharyngitis

REACTIONS (1)
  - Rhinorrhoea [Recovered/Resolved]

NARRATIVE: CASE EVENT DATE: 20220201
